FAERS Safety Report 16464967 (Version 1)
Quarter: 2019Q2

REPORT INFORMATION
  Report Type: Spontaneous
  Country: US (occurrence: US)
  Receive Date: 20190621
  Receipt Date: 20190621
  Transmission Date: 20190711
  Serious: No
  Sender: FDA-Public Use
  Company Number: US-PERRIGO-18US010479

PATIENT
  Age: 74 Year
  Sex: Male
  Weight: 108.84 kg

DRUGS (9)
  1. SEROQUEL [Concomitant]
     Active Substance: QUETIAPINE FUMARATE
     Indication: INSOMNIA
     Dosage: UNK
     Route: 065
     Dates: start: 2018
  2. BABY ASPIRIN [Concomitant]
     Active Substance: ASPIRIN
     Indication: VENTRICULAR EXTRASYSTOLES
     Dosage: UNK
     Route: 065
  3. BACLOFEN. [Concomitant]
     Active Substance: BACLOFEN
     Indication: MUSCLE SPASMS
     Dosage: UNK
     Route: 065
     Dates: start: 201806
  4. NEXIUM [Concomitant]
     Active Substance: ESOMEPRAZOLE MAGNESIUM
     Indication: GASTROOESOPHAGEAL REFLUX DISEASE
     Dosage: UNK
     Route: 065
  5. OXYCODONE [Concomitant]
     Active Substance: OXYCODONE
     Indication: PAIN
     Dosage: UNK
     Route: 065
  6. BABY ASPIRIN [Concomitant]
     Active Substance: ASPIRIN
     Indication: CARDIAC ASSISTANCE DEVICE USER
  7. FLUTICASONE PROPIONATE. [Suspect]
     Active Substance: FLUTICASONE PROPIONATE
     Indication: ECZEMA
     Dosage: 1 PEA SIZED APPLICATION, BID
     Route: 061
     Dates: start: 20180924
  8. CARBIDOPA LEVODOPA [Concomitant]
     Active Substance: CARBIDOPA\LEVODOPA
     Indication: PARKINSON^S DISEASE
     Dosage: UNK
     Route: 065
  9. MAGNESIUM [Concomitant]
     Active Substance: MAGNESIUM
     Indication: RESTLESS LEGS SYNDROME
     Dosage: UNK
     Route: 065

REACTIONS (1)
  - Mobility decreased [Unknown]

NARRATIVE: CASE EVENT DATE: 20180928
